FAERS Safety Report 20075675 (Version 1)
Quarter: 2021Q4

REPORT INFORMATION
  Report Type: Spontaneous
  Country: US (occurrence: US)
  Receive Date: 20211116
  Receipt Date: 20211116
  Transmission Date: 20220303
  Serious: No
  Sender: FDA-Public Use
  Company Number: US-NOVOPROD-810244

PATIENT
  Sex: Female

DRUGS (1)
  1. TRESIBA [Suspect]
     Active Substance: INSULIN DEGLUDEC
     Indication: Product used for unknown indication
     Dosage: UNK
     Route: 058
     Dates: start: 20191128

REACTIONS (8)
  - Rhinalgia [Recovering/Resolving]
  - Chest pain [Recovering/Resolving]
  - Oropharyngeal pain [Recovering/Resolving]
  - Choking sensation [Recovered/Resolved]
  - Cough [Recovered/Resolved]
  - Dysphonia [Recovering/Resolving]
  - Product odour abnormal [Unknown]
  - Accidental exposure to product [Unknown]

NARRATIVE: CASE EVENT DATE: 20210401
